FAERS Safety Report 20360842 (Version 2)
Quarter: 2022Q1

REPORT INFORMATION
  Report Type: Spontaneous
  Country: US (occurrence: US)
  Receive Date: 20220121
  Receipt Date: 20220125
  Transmission Date: 20220424
  Serious: Yes (Other)
  Sender: FDA-Public Use
  Company Number: US-JNJFOC-20220135933

PATIENT

DRUGS (7)
  1. IMBRUVICA [Suspect]
     Active Substance: IBRUTINIB
     Indication: Non-Hodgkin^s lymphoma recurrent
     Dosage: ON CYCLE 1 DAY 2 AT A FIXED DOSE
     Route: 048
  2. IMBRUVICA [Suspect]
     Active Substance: IBRUTINIB
     Indication: Chronic lymphocytic leukaemia
     Dosage: FOR MCL
     Route: 048
  3. PEVONEDISTAT [Suspect]
     Active Substance: PEVONEDISTAT
     Indication: Non-Hodgkin^s lymphoma recurrent
     Dosage: ON DAYS 1, 3 AND 5 OF A 21-DAY CYCLE FOR A TOTAL OF 8 CYCL
     Route: 042
  4. PEVONEDISTAT [Suspect]
     Active Substance: PEVONEDISTAT
     Indication: Chronic lymphocytic leukaemia
     Dosage: ON DAYS 1, 3 AND 5 OF A 21-DAY CYCLE FOR A TOTAL OF 8 CYCL
     Route: 042
  5. PEVONEDISTAT [Suspect]
     Active Substance: PEVONEDISTAT
     Dosage: ON DAYS 1, 3 AND 5 OF A 21-DAY CYCLE FOR A TOTAL OF 8 CYCL
     Route: 042
  6. PEVONEDISTAT [Suspect]
     Active Substance: PEVONEDISTAT
     Dosage: ON DAYS 1, 3 AND 5 OF A 21-DAY CYCLE FOR A TOTAL OF 8 CYCL
     Route: 042
  7. PEVONEDISTAT [Suspect]
     Active Substance: PEVONEDISTAT
     Dosage: ON DAYS 1, 3 AND 5 OF A 21-DAY CYCLE FOR A TOTAL OF 8 CYCL
     Route: 042

REACTIONS (16)
  - Non-cardiac chest pain [Unknown]
  - Mediastinal haemorrhage [Unknown]
  - Arthralgia [Unknown]
  - Diarrhoea [Unknown]
  - Contusion [Unknown]
  - Bone pain [Unknown]
  - Thrombocytopenia [Unknown]
  - Anaemia [Unknown]
  - Myalgia [Unknown]
  - Fatigue [Unknown]
  - Nausea [Unknown]
  - Atrial fibrillation [Unknown]
  - Headache [Unknown]
  - Epistaxis [Unknown]
  - Peripheral sensory neuropathy [Unknown]
  - Rash maculo-papular [Unknown]
